FAERS Safety Report 16385331 (Version 3)
Quarter: 2019Q3

REPORT INFORMATION
  Report Type: Spontaneous
  Country: ES (occurrence: ES)
  Receive Date: 20190603
  Receipt Date: 20190920
  Transmission Date: 20191004
  Serious: Yes (Other)
  Sender: FDA-Public Use
  Company Number: ES-TEVA-2019-ES-1056959

PATIENT
  Age: 6 Month
  Sex: Male
  Weight: 7.52 kg

DRUGS (4)
  1. CUTIVATE 0,5 MG/G CREMA [Concomitant]
     Route: 061
     Dates: start: 20190225, end: 20190303
  2. OP2455 - OMEPRAZOL FORMULA MAGISTRAL [Concomitant]
     Active Substance: OMEPRAZOLE
     Dosage: 2 MG/ML CONCENTRATION
     Route: 048
     Dates: start: 20190107, end: 20190225
  3. OMEPRAZOL (2141A) [Suspect]
     Active Substance: OMEPRAZOLE
     Indication: GASTROOESOPHAGEAL REFLUX DISEASE
     Dosage: CONCENTRATION 2 MG/ML
     Route: 048
     Dates: start: 20190225, end: 20190425
  4. MINOXIDIL (782A) [Suspect]
     Active Substance: MINOXIDIL
     Route: 048
     Dates: start: 20190225, end: 20190425

REACTIONS (2)
  - Product formulation issue [Recovered/Resolved]
  - Hypertrichosis [Recovering/Resolving]

NARRATIVE: CASE EVENT DATE: 20190225
